FAERS Safety Report 14056041 (Version 1)
Quarter: 2017Q4

REPORT INFORMATION
  Report Type: Other
  Country: FR (occurrence: FR)
  Receive Date: 20171006
  Receipt Date: 20171006
  Transmission Date: 20180321
  Serious: Yes (Hospitalization)
  Sender: FDA-Public Use
  Company Number: FR-VALIDUS PHARMACEUTICALS LLC-FR-2017VAL001399

PATIENT
  Age: 57 Year
  Sex: Male

DRUGS (21)
  1. ARACYTINE [Suspect]
     Active Substance: CYTARABINE
     Indication: ACUTE MYELOID LEUKAEMIA
     Dosage: 340 MG, QD
     Route: 042
     Dates: start: 20170608, end: 20170614
  2. PIPERACILLIN/TAZOBACTAM [Suspect]
     Active Substance: PIPERACILLIN SODIUM\TAZOBACTAM SODIUM
     Indication: ANTIBIOTIC THERAPY
     Dosage: 4 G, QD
     Route: 042
     Dates: start: 20170612, end: 20170614
  3. PARACETAMOL [Suspect]
     Active Substance: ACETAMINOPHEN
     Indication: ANALGESIC INTERVENTION SUPPORTIVE THERAPY
     Dosage: 2 G, QD
     Route: 042
     Dates: start: 20170617, end: 20170618
  4. FUROSEMIDE. [Suspect]
     Active Substance: FUROSEMIDE
     Indication: ACUTE PULMONARY OEDEMA
     Dosage: UNK, QD
     Route: 042
     Dates: start: 20170616, end: 20170620
  5. OROZAMUDOL [Suspect]
     Active Substance: TRAMADOL
     Indication: ANALGESIC INTERVENTION SUPPORTIVE THERAPY
     Dosage: 2 DF, QD
     Route: 048
     Dates: start: 20170611, end: 20170620
  6. ALDACTONE [Suspect]
     Active Substance: SPIRONOLACTONE
     Indication: OEDEMA
     Dosage: 1 DF, QD
     Route: 048
     Dates: start: 20170619
  7. FORTUM                             /00559701/ [Suspect]
     Active Substance: CEFTAZIDIME
     Indication: ANTIBIOTIC THERAPY
     Dosage: 6 G, QD
     Route: 042
     Dates: start: 20170614, end: 20170619
  8. TENORMIN [Suspect]
     Active Substance: ATENOLOL
     Indication: CHEMOTHERAPY
     Dosage: 1 DF, QD
     Route: 042
     Dates: start: 20170614, end: 20170617
  9. TENORMIN [Suspect]
     Active Substance: ATENOLOL
     Indication: ATRIAL FIBRILLATION
     Dosage: UNK, TID
     Route: 042
     Dates: start: 20170619
  10. CANCIDAS [Suspect]
     Active Substance: CASPOFUNGIN ACETATE
     Indication: FUNGAL INFECTION
     Dosage: 50 MG, QD
     Route: 042
     Dates: start: 20170618, end: 20170620
  11. VITAMIN K1 [Suspect]
     Active Substance: PHYTONADIONE
     Indication: ELECTROLYTE SUBSTITUTION THERAPY
     Dosage: 1 DF, QD
     Route: 048
     Dates: start: 20170607, end: 20170619
  12. PRIMPERAN [Suspect]
     Active Substance: METOCLOPRAMIDE HYDROCHLORIDE
     Indication: NAUSEA
     Dosage: 1 DF, QD
     Route: 048
     Dates: start: 20170613, end: 20170621
  13. VANCOMYCINE SANDOZ [Suspect]
     Active Substance: VANCOMYCIN
     Indication: ANTIBIOTIC THERAPY
     Dosage: UNK, QD
     Route: 042
     Dates: start: 20170610, end: 20170619
  14. TOPALGIC                           /00599202/ [Suspect]
     Active Substance: TRAMADOL HYDROCHLORIDE
     Indication: ANALGESIC INTERVENTION SUPPORTIVE THERAPY
     Dosage: UNK, QD
     Route: 042
     Dates: start: 20170611, end: 20170620
  15. VIALEBEX [Suspect]
     Active Substance: ALBUMIN HUMAN
     Indication: OEDEMA
     Dosage: 1 DF, QD
     Route: 042
     Dates: start: 20170619
  16. ZOVIRAX [Suspect]
     Active Substance: ACYCLOVIR
     Indication: ANTIVIRAL TREATMENT
     Dosage: UNK
     Route: 042
     Dates: start: 20170613, end: 20170621
  17. IDARUBICIN [Suspect]
     Active Substance: IDARUBICIN
     Indication: ACUTE MYELOID LEUKAEMIA
     Dosage: 15.3 MG, QD
     Route: 042
     Dates: start: 20170608, end: 20170612
  18. ZYVOXID [Suspect]
     Active Substance: LINEZOLID
     Indication: ANTIBIOTIC THERAPY
     Dosage: 1200 MG, QD
     Route: 042
     Dates: start: 20170619, end: 20170620
  19. XANAX [Suspect]
     Active Substance: ALPRAZOLAM
     Indication: ANXIETY
     Dosage: 1 DF, SINGLE
     Route: 048
  20. TIENAM [Suspect]
     Active Substance: CILASTATIN SODIUM\IMIPENEM
     Indication: ANTIBIOTIC THERAPY
     Dosage: 1000 MG, QD
     Route: 042
     Dates: start: 20170619, end: 20170620
  21. CYCLO 3 FORT [Suspect]
     Active Substance: ASCORBIC ACID\HESPERIDIN METHYLCHALCONE\RUSCUS ACULEATUS ROOT
     Indication: HAEMORRHOIDS
     Dosage: 3 DF, QD
     Route: 048
     Dates: start: 20170608, end: 20170618

REACTIONS (3)
  - Hyperbilirubinaemia [Not Recovered/Not Resolved]
  - Atrial fibrillation [Recovering/Resolving]
  - Extrapyramidal disorder [Recovering/Resolving]

NARRATIVE: CASE EVENT DATE: 20170619
